FAERS Safety Report 10341684 (Version 4)
Quarter: 2015Q3

REPORT INFORMATION
  Report Type: Spontaneous
  Country: US (occurrence: US)
  Receive Date: 20140725
  Receipt Date: 20150826
  Transmission Date: 20151125
  Serious: Yes (Hospitalization, Congenital Anomaly, Other)
  Sender: FDA-Public Use
  Company Number: US-ELI_LILLY_AND_COMPANY-US201407006570

PATIENT
  Age: 0 Day
  Sex: Female
  Weight: 2.44 kg

DRUGS (10)
  1. MAGNESIUM SULFATE. [Concomitant]
     Active Substance: MAGNESIUM SULFATE
     Route: 064
  2. LABETALOL [Concomitant]
     Active Substance: LABETALOL\LABETALOL HYDROCHLORIDE
     Dosage: UNK, UNKNOWN
     Route: 064
  3. INSULIN [Concomitant]
     Active Substance: INSULIN NOS
     Route: 064
  4. PENICILLIN                         /00000901/ [Concomitant]
     Active Substance: PENICILLIN G
     Route: 064
  5. BICITRA                            /00586801/ [Concomitant]
     Route: 064
  6. PROZAC [Suspect]
     Active Substance: FLUOXETINE HYDROCHLORIDE
     Indication: PRODUCT USED FOR UNKNOWN INDICATION
     Dosage: UNK, UNKNOWN
     Route: 064
  7. HYDRALAZINE [Concomitant]
     Active Substance: HYDRALAZINE HYDROCHLORIDE
     Route: 064
  8. COLACE [Concomitant]
     Active Substance: DOCUSATE SODIUM
     Route: 064
  9. REGLAN [Concomitant]
     Active Substance: METOCLOPRAMIDE HYDROCHLORIDE
     Route: 064
  10. ZYPREXA [Concomitant]
     Active Substance: OLANZAPINE
     Route: 064

REACTIONS (8)
  - Persistent foetal circulation [Unknown]
  - Jaundice [Unknown]
  - Talipes [Unknown]
  - Respiratory depression [Recovering/Resolving]
  - Apgar score low [Recovered/Resolved]
  - Hypermagnesaemia [Recovered/Resolved]
  - Premature baby [Unknown]
  - Foetal exposure during pregnancy [Recovered/Resolved]

NARRATIVE: CASE EVENT DATE: 20030623
